FAERS Safety Report 24357463 (Version 1)
Quarter: 2024Q3

REPORT INFORMATION
  Report Type: Spontaneous
  Country: BE (occurrence: BE)
  Receive Date: 20240924
  Receipt Date: 20240924
  Transmission Date: 20241017
  Serious: Yes (Hospitalization, Other)
  Sender: PERRIGO
  Company Number: BE-SANDOZ-SDZ2024BE077442

PATIENT
  Age: 27 Year
  Sex: Male

DRUGS (5)
  1. NICOTINE [Suspect]
     Active Substance: NICOTINE
     Indication: Product used for unknown indication
     Dosage: UNK
     Route: 065
  2. VENLAFAXINE [Suspect]
     Active Substance: VENLAFAXINE HYDROCHLORIDE
     Indication: Depression
     Dosage: 75 MG, IN THE MORNING
     Route: 065
  3. ATOMOXETINE [Suspect]
     Active Substance: ATOMOXETINE HYDROCHLORIDE
     Indication: Attention deficit hyperactivity disorder
     Dosage: 60 MG, IN THE MORNING.
     Route: 065
  4. COCAINE [Suspect]
     Active Substance: COCAINE
     Indication: Product used for unknown indication
     Dosage: UNK, 1 TO 2 GRAMS DAILY
     Route: 065
  5. BILASTINE [Concomitant]
     Active Substance: BILASTINE
     Indication: Product used for unknown indication
     Dosage: 20 MG, IN THE MORNING
     Route: 065

REACTIONS (1)
  - Reversible cerebral vasoconstriction syndrome [Recovered/Resolved]
